FAERS Safety Report 5565503-5 (Version None)
Quarter: 2007Q4

REPORT INFORMATION
  Report Type: 
  Country: None (occurrence: None)
  Receive Date: 20071218
  Receipt Date: 20071206
  Transmission Date: 20080405
  Serious: Yes (Hospitalization, Other)
  Sender: FDA-Public Use
  Company Number: JP-PFIZER INC-2007104177

PATIENT
  Age: 69 Year
  Sex: Female

DRUGS (4)
  1. LIPITOR [Suspect]
     Indication: HYPERLIPIDAEMIA
     Dosage: DAILY DOSE:10MG-FREQ:DAILY
     Route: 048
  2. GLIMEPIRIDE [Concomitant]
  3. VOGLIBOSE [Concomitant]
  4. PIOGLITAZONE [Interacting]
     Dosage: DAILY DOSE:15MG-FREQ:DAILY

REACTIONS (7)
  - ABASIA [None]
  - DIARRHOEA [None]
  - DRUG INTERACTION [None]
  - GLYCOSYLATED HAEMOGLOBIN INCREASED [None]
  - LOW DENSITY LIPOPROTEIN DECREASED [None]
  - RHABDOMYOLYSIS [None]
  - VOMITING [None]
